FAERS Safety Report 8927288 (Version 4)
Quarter: 2012Q4

REPORT INFORMATION
  Report Type: 
  Country: US (occurrence: US)
  Receive Date: 20121127
  Receipt Date: 20121212
  Transmission Date: 20130627
  Serious: Yes (Other)
  Sender: FDA-Public Use
  Company Number: US-JNJFOC-20121110169

PATIENT
  Sex: Female
  Weight: 122.47 kg

DRUGS (8)
  1. TRAMADOL HYDROCHLORIDE [Suspect]
     Indication: BACK PAIN
     Route: 048
     Dates: start: 2010
  2. CONCERTA XL [Suspect]
     Indication: ATTENTION DEFICIT/HYPERACTIVITY DISORDER
     Route: 048
  3. CONCERTA XL [Suspect]
     Indication: ATTENTION DEFICIT/HYPERACTIVITY DISORDER
     Dosage: once daily
     Route: 048
     Dates: start: 20121105
  4. LISINOPRIL [Suspect]
     Indication: BLOOD PRESSURE
     Dosage: once daily
     Route: 048
     Dates: end: 2011
  5. LEXAPRO [Concomitant]
     Indication: BIPOLAR DISORDER
     Dosage: once daily
     Route: 048
     Dates: start: 2011
  6. ABILIFY [Concomitant]
     Indication: BIPOLAR DISORDER
     Dosage: 1 per 1 day
     Route: 048
     Dates: start: 2011
  7. VITAMIN [Concomitant]
     Indication: NUTRITIONAL SUPPORT
     Dosage: 2 per 1 day
     Route: 048
     Dates: start: 2004
  8. SYNTHROID [Concomitant]
     Indication: THYROID DISORDER
     Dosage: 1 per 1 day
     Route: 048
     Dates: start: 2010

REACTIONS (6)
  - Arthritis [Not Recovered/Not Resolved]
  - Dyskinesia [Unknown]
  - Attention deficit/hyperactivity disorder [Not Recovered/Not Resolved]
  - Muscle twitching [Not Recovered/Not Resolved]
  - Drug hypersensitivity [Recovered/Resolved]
  - Cough [Recovered/Resolved]
